FAERS Safety Report 25607523 (Version 1)
Quarter: 2025Q3

REPORT INFORMATION
  Report Type: Spontaneous
  Country: US (occurrence: US)
  Receive Date: 20250725
  Receipt Date: 20250725
  Transmission Date: 20251021
  Serious: Yes (Life-Threatening, Hospitalization)
  Sender: FERRING
  Company Number: US-FERRINGPH-2025FE03809

PATIENT

DRUGS (18)
  1. DEGARELIX [Suspect]
     Active Substance: DEGARELIX
     Indication: Hormone-dependent prostate cancer
     Dosage: 80 MG, MONTHLY
     Route: 058
     Dates: start: 20230705
  2. LUTETIUM LU-177 VIPIVOTIDE TETRAXETAN [Suspect]
     Active Substance: LUTETIUM LU-177 VIPIVOTIDE TETRAXETAN
     Indication: Hormone-dependent prostate cancer
     Dosage: 7.4 GBQ, ONCE/SINGLE
     Route: 042
     Dates: start: 20230712, end: 20230712
  3. LUTETIUM LU-177 VIPIVOTIDE TETRAXETAN [Suspect]
     Active Substance: LUTETIUM LU-177 VIPIVOTIDE TETRAXETAN
     Dosage: 7.55 GBQ, ONCE/SINGLE
     Route: 042
     Dates: start: 20230823, end: 20230823
  4. LUTETIUM LU-177 VIPIVOTIDE TETRAXETAN [Suspect]
     Active Substance: LUTETIUM LU-177 VIPIVOTIDE TETRAXETAN
     Dosage: 7.42 GBQ, ONCE/SINGLE
     Route: 042
     Dates: start: 20231004, end: 20231004
  5. LUTETIUM LU-177 VIPIVOTIDE TETRAXETAN [Suspect]
     Active Substance: LUTETIUM LU-177 VIPIVOTIDE TETRAXETAN
     Dosage: 7.43 GBQ, ONCE/SINGLE
     Route: 042
     Dates: start: 20231115, end: 20231115
  6. LUTETIUM LU-177 VIPIVOTIDE TETRAXETAN [Suspect]
     Active Substance: LUTETIUM LU-177 VIPIVOTIDE TETRAXETAN
     Dosage: 7.48 GBQ, ONCE/SINGLE
     Route: 042
     Dates: start: 20240103, end: 20240103
  7. LUTETIUM LU-177 VIPIVOTIDE TETRAXETAN [Suspect]
     Active Substance: LUTETIUM LU-177 VIPIVOTIDE TETRAXETAN
     Dosage: 7.37 GBQ, ONCE/SINGLE
     Route: 042
     Dates: start: 20240207, end: 20240207
  8. GALLIUM GA-68 GOZETOTIDE [Suspect]
     Active Substance: GALLIUM GA-68 GOZETOTIDE
     Indication: Hormone-dependent prostate cancer
     Dosage: 5 MCI, ONCE/SINGLE
     Route: 042
     Dates: start: 20230621, end: 20230621
  9. ABIRATERONE [Suspect]
     Active Substance: ABIRATERONE
     Indication: Hormone-dependent prostate cancer
     Route: 048
     Dates: start: 20230705
  10. LOSARTAN [Concomitant]
     Active Substance: LOSARTAN
     Route: 065
     Dates: start: 20210409
  11. VENLAFAXINE [Concomitant]
     Active Substance: VENLAFAXINE HYDROCHLORIDE
     Route: 065
     Dates: start: 20210409
  12. AMLODIPINE [Concomitant]
     Active Substance: AMLODIPINE BESYLATE
     Route: 065
     Dates: start: 20230407
  13. TAMSULOSIN [Concomitant]
     Active Substance: TAMSULOSIN
     Route: 065
     Dates: start: 20230416
  14. POLYETHYLENE GLYCOLS [Concomitant]
     Active Substance: POLYETHYLENE GLYCOLS
     Route: 065
     Dates: start: 20230510
  15. DELTASONE [Concomitant]
     Active Substance: PREDNISONE
     Route: 065
     Dates: start: 20230609, end: 20231107
  16. PROLIA [Concomitant]
     Active Substance: DENOSUMAB
     Route: 065
     Dates: start: 20230510
  17. CALCIUM [Concomitant]
     Active Substance: CALCIUM
     Route: 065
     Dates: start: 20230510
  18. VITAMIN D [Concomitant]
     Active Substance: VITAMIN D NOS
     Route: 065
     Dates: start: 20230510

REACTIONS (1)
  - Hyperglycaemic hyperosmolar nonketotic syndrome [Recovered/Resolved]

NARRATIVE: CASE EVENT DATE: 20231104
